FAERS Safety Report 15936953 (Version 1)
Quarter: 2019Q1

REPORT INFORMATION
  Report Type: Spontaneous
  Country: CA (occurrence: CA)
  Receive Date: 20190208
  Receipt Date: 20190208
  Transmission Date: 20190417
  Serious: Yes (Hospitalization)
  Sender: FDA-Public Use
  Company Number: CA-ORION CORPORATION ORION PHARMA-TREX2017-4062

PATIENT
  Age: 82 Year
  Sex: Male

DRUGS (3)
  1. METHOTREXATE (TRADE NAME UNKNOWN) [Suspect]
     Active Substance: METHOTREXATE
     Indication: RHEUMATOID ARTHRITIS
     Route: 048
     Dates: start: 20171012
  2. FOLIC ACID. [Concomitant]
     Active Substance: FOLIC ACID
     Route: 065
  3. XELJANZ [Suspect]
     Active Substance: TOFACITINIB CITRATE
     Indication: RHEUMATOID ARTHRITIS
     Route: 048
     Dates: start: 20171012

REACTIONS (8)
  - Oral herpes [Unknown]
  - Oropharyngeal pain [Unknown]
  - Immune system disorder [Unknown]
  - Cough [Unknown]
  - Pneumonia [Not Recovered/Not Resolved]
  - Malaise [Unknown]
  - Drug effect incomplete [Unknown]
  - Nasopharyngitis [Unknown]
